FAERS Safety Report 8150058-1 (Version None)
Quarter: 2012Q1

REPORT INFORMATION
  Report Type: 
  Country: None (occurrence: None)
  Receive Date: 20120219
  Receipt Date: 20120209
  Transmission Date: 20120608
  Serious: Yes (Hospitalization)
  Sender: FDA-Public Use
  Company Number: US-BRISTOL-MYERS SQUIBB COMPANY-16349508

PATIENT
  Age: 68 Year
  Sex: Female

DRUGS (22)
  1. ERLOTINIB HYDROCHLORIDE [Suspect]
     Indication: NON-SMALL CELL LUNG CANCER
     Dosage: INTERRUPTED ON 06JAN2012,RESTARTED ON 20JAN12
     Route: 048
     Dates: start: 20111202
  2. LOMOTIL [Concomitant]
     Dosage: 1DF:1-2TAB
     Route: 048
  3. ASPIRIN [Concomitant]
     Indication: PROPHYLAXIS
     Dosage: AT BEDTIME TABS
     Route: 048
  4. FISH OIL [Concomitant]
     Indication: SUPPLEMENTATION THERAPY
     Dosage: AT BEDTIME TABS
     Route: 048
  5. MULTI-VITAMIN [Concomitant]
     Indication: SUPPLEMENTATION THERAPY
     Dosage: 1DF: 1TAB
     Route: 048
  6. DASATINIB [Suspect]
     Indication: NON-SMALL CELL LUNG CANCER
     Dosage: INTERRUPTED ON 06JAN2012 AND RESTARTED ON 20JAN12 LOT #: 20MG: 1G67348,50MG: 1A71387,1H55827
     Route: 048
     Dates: start: 20111202
  7. HYDROCHLOROTHIAZIDE [Concomitant]
     Indication: HYPERTENSION
     Route: 048
  8. SIMVASTATIN [Concomitant]
     Indication: BLOOD CHOLESTEROL
     Dosage: AT BEDTIME
     Route: 048
  9. TOPROL-XL [Concomitant]
     Indication: HYPERTENSION
     Route: 048
  10. ACETAMINOPHEN [Concomitant]
     Indication: HEADACHE
     Route: 048
  11. ZETIA [Concomitant]
     Indication: BLOOD CHOLESTEROL
     Dosage: AT BEDTIME
     Route: 048
  12. ERLOTINIB HYDROCHLORIDE [Concomitant]
  13. EFFEXOR XR [Concomitant]
     Indication: DEPRESSION
     Dosage: TABS MORNING
     Route: 048
  14. EVISTA [Concomitant]
     Indication: OSTEOPOROSIS
     Dosage: TABS,
     Route: 048
  15. ACETAMINOPHEN [Concomitant]
     Indication: PAIN
     Route: 048
  16. XALATAN [Concomitant]
     Indication: GLAUCOMA
     Route: 047
  17. CLONAZEPAM [Concomitant]
     Indication: ANXIETY
     Dosage: TAB
     Route: 048
  18. DIOVAN [Concomitant]
     Indication: HYPERTENSION
     Dosage: TABS
     Route: 048
  19. TIMOLOL MALEATE [Concomitant]
     Indication: GLAUCOMA
     Route: 047
  20. CALCIUM [Concomitant]
     Indication: SUPPLEMENTATION THERAPY
     Dosage: 1DF: 1TAB
     Route: 048
  21. NORVASC [Concomitant]
     Indication: HYPERTENSION
     Dosage: IN MORNING TAB
     Route: 048
  22. PREVACID [Concomitant]
     Indication: GASTROOESOPHAGEAL REFLUX DISEASE
     Dosage: TAB AT BEDTIME
     Route: 048

REACTIONS (3)
  - DYSPNOEA [None]
  - RESPIRATORY FAILURE [None]
  - MALIGNANT PLEURAL EFFUSION [None]
